FAERS Safety Report 9447883 (Version 1)
Quarter: 2013Q3

REPORT INFORMATION
  Report Type: Spontaneous
  Country: FR (occurrence: None)
  Receive Date: 20130805
  Receipt Date: 20130805
  Transmission Date: 20140515
  Serious: Yes (Other)
  Sender: FDA-Public Use
  Company Number: FR-ALKEM-000112

PATIENT
  Age: 36 Year
  Sex: Female

DRUGS (2)
  1. METFORMIN (METFORMIN) [Suspect]
     Indication: PRODUCT USED FOR UNKNOWN INDICATION
  2. INSULIN [Concomitant]

REACTIONS (7)
  - Premature rupture of membranes [None]
  - Premature labour [None]
  - Amniotic cavity infection [None]
  - Pregnancy [None]
  - Premature delivery [None]
  - Exposure during pregnancy [None]
  - Caesarean section [None]
